FAERS Safety Report 11944614 (Version 1)
Quarter: 2016Q1

REPORT INFORMATION
  Report Type: Spontaneous
  Country: US (occurrence: US)
  Receive Date: 20160125
  Receipt Date: 20160125
  Transmission Date: 20160526
  Serious: No
  Sender: FDA-Public Use
  Company Number: US-UNICHEM LABORATORIES LIMITED-UCM201501-000018

PATIENT
  Age: 70 Year
  Sex: Female
  Weight: 72.5 kg

DRUGS (7)
  1. CALCIUM [Concomitant]
     Active Substance: CALCIUM
  2. CYMBALTA [Concomitant]
     Active Substance: DULOXETINE HYDROCHLORIDE
     Indication: FIBROMYALGIA
  3. MELOXICAM. [Suspect]
     Active Substance: MELOXICAM
     Indication: FIBROMYALGIA
     Dates: start: 2011
  4. BENADRYL [Concomitant]
     Active Substance: DIPHENHYDRAMINE HYDROCHLORIDE
     Indication: SLEEP DISORDER
  5. VITAMIN D [Concomitant]
     Active Substance: CHOLECALCIFEROL
  6. MELOXICAM. [Suspect]
     Active Substance: MELOXICAM
     Dates: start: 201412, end: 20150114
  7. TRAZODONE [Concomitant]
     Active Substance: TRAZODONE HYDROCHLORIDE
     Indication: SLEEP DISORDER

REACTIONS (11)
  - Lacrimation increased [Not Recovered/Not Resolved]
  - Feeling abnormal [Not Recovered/Not Resolved]
  - Periorbital oedema [Not Recovered/Not Resolved]
  - Lip swelling [Recovered/Resolved]
  - Eye pruritus [Unknown]
  - Ocular hyperaemia [Not Recovered/Not Resolved]
  - Abdominal discomfort [Unknown]
  - Gastric ulcer [Unknown]
  - Erythema of eyelid [Unknown]
  - Pruritus [Not Recovered/Not Resolved]
  - Skin exfoliation [Recovered/Resolved]

NARRATIVE: CASE EVENT DATE: 201209
